FAERS Safety Report 6203984-4 (Version None)
Quarter: 2009Q2

REPORT INFORMATION
  Report Type: 
  Country: None (occurrence: None)
  Receive Date: 20090527
  Receipt Date: 20090519
  Transmission Date: 20091009
  Serious: Yes (Disabling)
  Sender: FDA-Public Use
  Company Number: B0575815A

PATIENT
  Age: 57 Year
  Sex: Female

DRUGS (5)
  1. BECONASE [Suspect]
     Dosage: 2APP TWICE PER DAY
     Route: 045
     Dates: start: 20090420, end: 20090427
  2. SERETIDE [Concomitant]
     Indication: ASTHMA
     Dosage: 2APP THREE TIMES PER DAY
     Route: 055
     Dates: start: 19900101
  3. AMLODIPINE [Concomitant]
     Indication: BLOOD PRESSURE
     Dosage: 10MG PER DAY
     Route: 048
  4. BURANA [Concomitant]
     Indication: PAIN
     Route: 048
  5. PANACOD [Concomitant]
     Indication: PAIN
     Route: 048

REACTIONS (1)
  - MIGRAINE [None]
